FAERS Safety Report 14869472 (Version 4)
Quarter: 2018Q3

REPORT INFORMATION
  Report Type: Report from Study
  Country: US (occurrence: US)
  Receive Date: 20180509
  Receipt Date: 20180712
  Transmission Date: 20181010
  Serious: Yes (Hospitalization, Other)
  Sender: FDA-Public Use
  Company Number: US-GILEAD-2018-0337110

PATIENT
  Age: 11 Month
  Sex: Female
  Weight: 10 kg

DRUGS (13)
  1. LASIX [Concomitant]
     Active Substance: FUROSEMIDE
  2. ADCIRCA [Concomitant]
     Active Substance: TADALAFIL
  3. TYLENOL [Concomitant]
     Active Substance: ACETAMINOPHEN
  4. PULMICORT TURBUHALER [Concomitant]
     Active Substance: BUDESONIDE
  5. MIRALAX [Concomitant]
     Active Substance: POLYETHYLENE GLYCOL 3350
  6. PREVACID [Concomitant]
     Active Substance: LANSOPRAZOLE
  7. AMBRISENTAN [Suspect]
     Active Substance: AMBRISENTAN
     Indication: PRODUCT USED FOR UNKNOWN INDICATION
     Dosage: 5 MG, QD
     Route: 048
     Dates: start: 20151215
  8. REMODULIN [Concomitant]
     Active Substance: TREPROSTINIL
  9. ZYRTEC [Concomitant]
     Active Substance: CETIRIZINE HYDROCHLORIDE
  10. TADALAFIL [Concomitant]
     Active Substance: TADALAFIL
  11. TRIAMCINOLONE [Concomitant]
     Active Substance: TRIAMCINOLONE
  12. HYDROCORTISONE. [Concomitant]
     Active Substance: HYDROCORTISONE
  13. ACCUNEB [Concomitant]
     Active Substance: ALBUTEROL SULFATE

REACTIONS (4)
  - Intestinal malrotation [Recovered/Resolved]
  - Gastric pneumatosis [Unknown]
  - Appendicectomy [Recovered/Resolved]
  - Off label use [Not Recovered/Not Resolved]

NARRATIVE: CASE EVENT DATE: 20151215
